FAERS Safety Report 7638680-X (Version None)
Quarter: 2011Q3

REPORT INFORMATION
  Report Type: 
  Country: None (occurrence: None)
  Receive Date: 20110727
  Receipt Date: 20110721
  Transmission Date: 20111222
  Serious: Yes (Other)
  Sender: FDA-Public Use
  Company Number: CA-PFIZER INC-2011166680

PATIENT
  Age: 54 Year
  Sex: Female

DRUGS (4)
  1. CRESTOR [Concomitant]
     Dosage: 2.5 MG, UNK
  2. LYRICA [Concomitant]
     Dosage: 25 MG, UNK
  3. METFORMIN [Concomitant]
     Dosage: 500 MG, UNK
  4. AROMASIN [Suspect]
     Dosage: 25 MG, 1X/DAY
     Dates: start: 20100901

REACTIONS (1)
  - COGNITIVE DISORDER [None]
